FAERS Safety Report 5849453-2 (Version None)
Quarter: 2008Q3

REPORT INFORMATION
  Report Type: 
  Country: None (occurrence: None)
  Receive Date: 20080819
  Receipt Date: 20080806
  Transmission Date: 20090109
  Serious: Yes (Life-Threatening, Hospitalization)
  Sender: FDA-Public Use
  Company Number: DE-CELGENEUS-062-21880-08060279

PATIENT
  Sex: Male
  Weight: 66 kg

DRUGS (1)
  1. REVLIMID [Suspect]
     Indication: MULTIPLE MYELOMA
     Route: 048
     Dates: start: 20080519, end: 20080527

REACTIONS (4)
  - BLOOD IMMUNOGLOBULIN G INCREASED [None]
  - DISEASE PROGRESSION [None]
  - HYPERCALCAEMIA [None]
  - PROTEIN TOTAL INCREASED [None]
